FAERS Safety Report 6600562-X (Version None)
Quarter: 2010Q1

REPORT INFORMATION
  Report Type: 
  Country: None (occurrence: None)
  Receive Date: 20100223
  Receipt Date: 20100223
  Transmission Date: 20100710
  Serious: Yes (Hospitalization)
  Sender: FDA-Public Use
  Company Number: None

PATIENT
  Sex: Male
  Weight: 109 kg

DRUGS (12)
  1. CARBOPLATIN [Suspect]
     Dosage: 528 MG
  2. ERBITUX [Suspect]
     Dosage: 2679.5 MG
  3. TAXOL [Suspect]
     Dosage: 314.7 MG
  4. CELECOXIB [Concomitant]
  5. FLUTICASONE/SALMETEROL [Concomitant]
  6. LABETALOL HCL [Concomitant]
  7. LANSOPRASOLE [Concomitant]
  8. LISINOPRIL [Concomitant]
  9. PYRIDOXINE [Concomitant]
  10. TAMSULOSIN HCL [Concomitant]
  11. TIOTROPIUM [Concomitant]
  12. WARFARIN SODIUM [Concomitant]

REACTIONS (6)
  - DEHYDRATION [None]
  - DIARRHOEA [None]
  - HYPOTENSION [None]
  - NEUTROPHIL COUNT DECREASED [None]
  - URINARY TRACT INFECTION [None]
  - WHITE BLOOD CELL COUNT DECREASED [None]
